FAERS Safety Report 6664763-7 (Version None)
Quarter: 2010Q1

REPORT INFORMATION
  Report Type: 
  Country: None (occurrence: None)
  Receive Date: 20100330
  Receipt Date: 20100315
  Transmission Date: 20100710
  Serious: Yes (Life-Threatening, Hospitalization)
  Sender: FDA-Public Use
  Company Number: 546017

PATIENT
  Age: 44 Year
  Sex: Female
  Weight: 75 kg

DRUGS (4)
  1. CARBOPLATIN [Suspect]
     Indication: OVARIAN CANCER METASTATIC
     Dosage: 7TH CYCLE,
     Dates: start: 20100223, end: 20100223
  2. METHYLPREDNISOLONE SODIUM SUCCINATE [Concomitant]
  3. ONDANSETRON HYDROCHLORIDE [Concomitant]
  4. CYCLOPHOSPHAMIDE MONOHYDRATE [Concomitant]

REACTIONS (6)
  - COUGH [None]
  - CREPITATIONS [None]
  - DYSPNOEA [None]
  - HYPERHIDROSIS [None]
  - HYPERSENSITIVITY [None]
  - WHEEZING [None]
